FAERS Safety Report 12619151 (Version 1)
Quarter: 2016Q3

REPORT INFORMATION
  Report Type: Spontaneous
  Country: FR (occurrence: FR)
  Receive Date: 20160803
  Receipt Date: 20160803
  Transmission Date: 20161109
  Serious: Yes (Other)
  Sender: FDA-Public Use
  Company Number: FR-BRISTOL-MYERS SQUIBB COMPANY-BMS-2016-060703

PATIENT
  Age: 73 Year
  Sex: Male

DRUGS (3)
  1. VINCRISTINE SULFATE. [Suspect]
     Active Substance: VINCRISTINE SULFATE
     Indication: PRODUCT USED FOR UNKNOWN INDICATION
     Dosage: 1.6 MG, UNK
     Route: 042
     Dates: start: 20160705, end: 20160708
  2. ETOPOPHOS [Suspect]
     Active Substance: ETOPOSIDE PHOSPHATE
     Indication: PRODUCT USED FOR UNKNOWN INDICATION
     Dosage: 330 MG, UNK
     Route: 042
     Dates: start: 20160705, end: 20160708
  3. DOXORUBICIN HYDROCHLORIDE INJECTION [Suspect]
     Active Substance: DOXORUBICIN HYDROCHLORIDE
     Indication: PRODUCT USED FOR UNKNOWN INDICATION
     Dosage: 65 MG, UNK
     Route: 042
     Dates: start: 20160705, end: 20160708

REACTIONS (3)
  - Catheter site erythema [Recovered/Resolved]
  - Catheter site oedema [Recovered/Resolved]
  - Catheter site pain [Recovered/Resolved]

NARRATIVE: CASE EVENT DATE: 20160708
